FAERS Safety Report 25840627 (Version 1)
Quarter: 2025Q3

REPORT INFORMATION
  Report Type: Spontaneous
  Country: US (occurrence: US)
  Receive Date: 20250924
  Receipt Date: 20250924
  Transmission Date: 20251021
  Serious: No
  Sender: Haleon PLC
  Company Number: US-ORG100013279-032997

PATIENT

DRUGS (1)
  1. LAMISIL [Suspect]
     Active Substance: TERBINAFINE HYDROCHLORIDE
     Indication: Tinea pedis
     Route: 061

REACTIONS (2)
  - Application site hypersensitivity [Unknown]
  - Rash erythematous [Unknown]
